FAERS Safety Report 14321952 (Version 1)
Quarter: 2017Q4

REPORT INFORMATION
  Report Type: Spontaneous
  Country: GB (occurrence: GB)
  Receive Date: 20171225
  Receipt Date: 20171225
  Transmission Date: 20180321
  Serious: Yes (Other)
  Sender: FDA-Public Use
  Company Number: GB-ABBVIE-17S-167-2203820-00

PATIENT
  Age: 3 Year
  Sex: Male

DRUGS (1)
  1. CLARITHROMYCIN. [Suspect]
     Active Substance: CLARITHROMYCIN
     Indication: PRODUCT USED FOR UNKNOWN INDICATION
     Dosage: 5 ML, HS
     Route: 065

REACTIONS (4)
  - Oropharyngeal blistering [Unknown]
  - Tongue blistering [Unknown]
  - Product taste abnormal [Unknown]
  - Burning sensation [Unknown]
